FAERS Safety Report 24123008 (Version 1)
Quarter: 2024Q3

REPORT INFORMATION
  Report Type: Spontaneous
  Country: NL (occurrence: NL)
  Receive Date: 20240723
  Receipt Date: 20240723
  Transmission Date: 20241016
  Serious: Yes (Life-Threatening)
  Sender: AUROBINDO
  Company Number: NL-LRB-00985460

PATIENT
  Age: 39 Year
  Sex: Female
  Weight: 74 kg

DRUGS (2)
  1. LISINOPRIL [Suspect]
     Active Substance: LISINOPRIL
     Indication: Chronic kidney disease
     Dosage: 1 DOSAGE FORM (1)
     Route: 065
     Dates: start: 20050414, end: 20240622
  2. LEVOTHYROXINE SODIUM [Concomitant]
     Active Substance: LEVOTHYROXINE SODIUM
     Indication: Product used for unknown indication
     Dosage: UNK (50)
     Route: 065

REACTIONS (1)
  - Tongue oedema [Recovered/Resolved]
